FAERS Safety Report 9753744 (Version 2)
Quarter: 2015Q3

REPORT INFORMATION
  Report Type: Spontaneous
  Country: US (occurrence: US)
  Receive Date: 20131213
  Receipt Date: 20150805
  Transmission Date: 20151125
  Serious: No
  Sender: FDA-Public Use
  Company Number: US-GILEAD-2010-0026614

PATIENT
  Age: 59 Year
  Sex: Male
  Weight: 119.29 kg

DRUGS (7)
  1. LETAIRIS [Suspect]
     Active Substance: AMBRISENTAN
     Indication: PULMONARY ARTERIAL HYPERTENSION
     Route: 048
     Dates: start: 20080208, end: 20100121
  2. TORSEMIDE. [Concomitant]
     Active Substance: TORSEMIDE
  3. POTASSIUM CHLORIDE. [Concomitant]
     Active Substance: POTASSIUM CHLORIDE
  4. SPIRONOLACTONE. [Concomitant]
     Active Substance: SPIRONOLACTONE
  5. LORAZEPAM. [Concomitant]
     Active Substance: LORAZEPAM
  6. REVATIO [Concomitant]
     Active Substance: SILDENAFIL CITRATE
  7. COUMADIN [Concomitant]
     Active Substance: WARFARIN SODIUM

REACTIONS (1)
  - Liver function test abnormal [Unknown]
